FAERS Safety Report 5815980-7 (Version None)
Quarter: 2008Q3

REPORT INFORMATION
  Report Type: 
  Country: None (occurrence: None)
  Receive Date: 20080721
  Receipt Date: 20080710
  Transmission Date: 20090109
  Serious: Yes (Other)
  Sender: FDA-Public Use
  Company Number: PHHY2008BR13730

PATIENT
  Sex: Female

DRUGS (3)
  1. EXFORGE [Suspect]
     Indication: HYPERTENSION
     Dosage: 1 DF, QD
     Route: 048
     Dates: start: 20070901
  2. PREXIGE [Suspect]
     Indication: ANTIINFLAMMATORY THERAPY
     Dosage: 1 TABLET PER DAY
  3. PREXIGE [Suspect]
     Indication: PAIN

REACTIONS (1)
  - DENTAL IMPLANTATION [None]
